FAERS Safety Report 4914158-9 (Version None)
Quarter: 2006Q1

REPORT INFORMATION
  Report Type: 
  Country: None (occurrence: None)
  Receive Date: 20060210
  Receipt Date: 20030307
  Transmission Date: 20060701
  Serious: Yes (Congenital Anomaly)
  Sender: FDA-Public Use
  Company Number: A0589936A

PATIENT
  Sex: Male
  Weight: 2.5855 kg

DRUGS (3)
  1. LAMICTAL [Suspect]
     Indication: DRUG USE FOR UNKNOWN INDICATION
     Dosage: 300 MG/TRANSPLAC
     Route: 064
  2. ETHANOL [Concomitant]
  3. TOBACCO [Concomitant]

REACTIONS (2)
  - CONGENITAL NAIL DISORDER [None]
  - DRUG EXPOSURE DURING PREGNANCY [None]
